FAERS Safety Report 25859485 (Version 1)
Quarter: 2025Q3

REPORT INFORMATION
  Report Type: Spontaneous
  Country: EU (occurrence: EU)
  Receive Date: 20250929
  Receipt Date: 20250929
  Transmission Date: 20251020
  Serious: Yes (Other)
  Sender: MERCK SHARP & DOHME LLC
  Company Number: EU-009507513-2333547

PATIENT
  Age: 36 Year
  Sex: Female

DRUGS (9)
  1. PEMBROLIZUMAB [Suspect]
     Active Substance: PEMBROLIZUMAB
     Indication: Triple negative breast cancer
     Dosage: SINCE THE SECOND CYCLE PEMBROLIZUMAB 200 MG EVERY 3 WEEKS AS NEOADJUVANT THERAPY
     Dates: start: 2024
  2. PEMBROLIZUMAB [Suspect]
     Active Substance: PEMBROLIZUMAB
     Indication: Triple negative breast cancer
     Dates: start: 202506
  3. PACLITAXEL [Suspect]
     Active Substance: PACLITAXEL
     Indication: Triple negative breast cancer
     Dosage: 80 MG/M2, WEEKLY
     Dates: start: 20241128
  4. CARBOPLATIN [Suspect]
     Active Substance: CARBOPLATIN
     Indication: Triple negative breast cancer
     Dosage: AUC 1.5, WEEKLY
     Dates: start: 20241128
  5. CAPECITABINE [Suspect]
     Active Substance: CAPECITABINE
     Indication: Triple negative breast cancer
  6. IBUPROFEN [Suspect]
     Active Substance: IBUPROFEN
  7. ONDANSETRON [Suspect]
     Active Substance: ONDANSETRON
  8. FAMOTIDINE [Suspect]
     Active Substance: FAMOTIDINE
  9. GLUTAMINE [Suspect]
     Active Substance: GLUTAMINE

REACTIONS (7)
  - Hypothyroidism [Unknown]
  - Neuropathy peripheral [Unknown]
  - Product use issue [Unknown]
  - Drug hypersensitivity [Recovered/Resolved]
  - Anaemia [Unknown]
  - Rash maculo-papular [Recovered/Resolved]
  - Immune-mediated dermatitis [Recovered/Resolved]

NARRATIVE: CASE EVENT DATE: 20240101
